FAERS Safety Report 8495025-3 (Version None)
Quarter: 2012Q3

REPORT INFORMATION
  Report Type: 
  Country: None (occurrence: None)
  Receive Date: 20120709
  Receipt Date: 20120703
  Transmission Date: 20120928
  Serious: Yes (Hospitalization, Other)
  Sender: FDA-Public Use
  Company Number: PHHY2012BR057950

PATIENT
  Age: 74 Year
  Sex: Female

DRUGS (2)
  1. DIOVAN [Suspect]
     Indication: HYPERTENSION
     Dosage: 1 DF (160 MG), QD
     Dates: start: 20110101
  2. DIOVAN [Suspect]
     Indication: ARTERIAL OCCLUSIVE DISEASE

REACTIONS (1)
  - VASCULITIS NECROTISING [None]
